FAERS Safety Report 17714563 (Version 1)
Quarter: 2020Q2

REPORT INFORMATION
  Report Type: Spontaneous
  Country: US (occurrence: US)
  Receive Date: 20200425
  Receipt Date: 20200425
  Transmission Date: 20200714
  Serious: Yes (Hospitalization)
  Sender: FDA-Public Use
  Company Number: None

PATIENT
  Age: 67 Year
  Sex: Female
  Weight: 55.34 kg

DRUGS (3)
  1. CARBOPLATIN. [Suspect]
     Active Substance: CARBOPLATIN
     Dates: end: 20151110
  2. TAXOL [Suspect]
     Active Substance: PACLITAXEL
     Dates: end: 20151110
  3. METFORMIN HYDROCHLORIDE. [Suspect]
     Active Substance: METFORMIN HYDROCHLORIDE
     Dates: end: 20151212

REACTIONS (3)
  - Cholecystitis acute [None]
  - Abdominal pain [None]
  - Pancytopenia [None]

NARRATIVE: CASE EVENT DATE: 20151215
